FAERS Safety Report 24696446 (Version 1)
Quarter: 2024Q4

REPORT INFORMATION
  Report Type: Spontaneous
  Country: FR (occurrence: FR)
  Receive Date: 20241204
  Receipt Date: 20241204
  Transmission Date: 20250114
  Serious: Yes (Hospitalization, Other)
  Sender: CHEPLAPHARM
  Company Number: None

PATIENT
  Age: 71 Year
  Sex: Female
  Weight: 50 kg

DRUGS (4)
  1. CAPECITABINE [Suspect]
     Active Substance: CAPECITABINE
     Indication: Invasive lobular breast carcinoma
     Dosage: CAPECITABINE IN 2ND LINE
     Dates: start: 20240708, end: 20241029
  2. VALSARTAN [Concomitant]
     Active Substance: VALSARTAN
     Dosage: 60 MG IN THE MORNING?DAILY DOSE: 60 MILLIGRAM
  3. TIMOLOL MALEATE\TRAVOPROST [Concomitant]
     Active Substance: TIMOLOL MALEATE\TRAVOPROST
     Dosage: EYE DROPS IN THE MORNING
  4. TRUSOPT [Concomitant]
     Active Substance: DORZOLAMIDE HYDROCHLORIDE
     Dosage: EYE DROPS IN THE EVENING

REACTIONS (2)
  - Colitis [Recovered/Resolved]
  - Malnutrition [Unknown]

NARRATIVE: CASE EVENT DATE: 20241019
